FAERS Safety Report 6998542-8 (Version None)
Quarter: 2010Q3

REPORT INFORMATION
  Report Type: 
  Country: None (occurrence: None)
  Receive Date: 20100920
  Receipt Date: 20091112
  Transmission Date: 20110219
  Serious: No
  Sender: FDA-Public Use
  Company Number: US-ASTRAZENECA-2009SE26205

PATIENT
  Age: 65 Year
  Sex: Female

DRUGS (2)
  1. SEROQUEL XR [Suspect]
     Route: 048
  2. ATIVAN [Concomitant]

REACTIONS (2)
  - GAIT DISTURBANCE [None]
  - SENSATION OF HEAVINESS [None]
